FAERS Safety Report 5961294-4 (Version None)
Quarter: 2008Q4

REPORT INFORMATION
  Report Type: 
  Country: None (occurrence: None)
  Receive Date: 20081121
  Receipt Date: 20081112
  Transmission Date: 20090506
  Serious: Yes (Hospitalization)
  Sender: FDA-Public Use
  Company Number: JP-AMGEN-US319431

PATIENT
  Sex: Female
  Weight: 54 kg

DRUGS (4)
  1. ENBREL [Suspect]
     Indication: RHEUMATOID ARTHRITIS
     Route: 058
     Dates: start: 20060301, end: 20080924
  2. PREDNISOLONE [Suspect]
     Indication: RHEUMATOID ARTHRITIS
     Route: 048
     Dates: start: 20070207
  3. LOXONIN [Concomitant]
     Indication: RHEUMATOID ARTHRITIS
     Dosage: 1 DF/DAY
     Route: 048
  4. ACTONEL [Concomitant]
     Route: 048

REACTIONS (5)
  - DIARRHOEA [None]
  - PLEURAL EFFUSION [None]
  - PYREXIA [None]
  - TUBERCULOSIS [None]
  - VOMITING [None]
